FAERS Safety Report 24327540 (Version 2)
Quarter: 2024Q4

REPORT INFORMATION
  Report Type: Spontaneous
  Country: JP (occurrence: JP)
  Receive Date: 20240917
  Receipt Date: 20241128
  Transmission Date: 20250115
  Serious: Yes (Other)
  Sender: AMGEN
  Company Number: JP-AMGEN-JPNSP2023204519

PATIENT
  Age: 60 Year
  Sex: Male

DRUGS (9)
  1. LUMAKRAS [Suspect]
     Active Substance: SOTORASIB
     Indication: K-ras gene mutation
     Dosage: 960 MILLIGRAM, QD
     Route: 048
     Dates: start: 20230704, end: 20230903
  2. LUMAKRAS [Suspect]
     Active Substance: SOTORASIB
     Indication: Non-small cell lung cancer
     Dosage: 240 MILLIGRAM, QD DOSE REDUCED
     Route: 048
     Dates: start: 20231114, end: 202311
  3. LUMAKRAS [Suspect]
     Active Substance: SOTORASIB
     Dosage: 360 MILLIGRAM, QD DOSE INCREASED
     Route: 048
     Dates: start: 20231129, end: 2023
  4. LUMAKRAS [Suspect]
     Active Substance: SOTORASIB
     Dosage: 480 MILLIGRAM, QD DOSE INCREASED
     Route: 048
     Dates: start: 20231220
  5. LUMAKRAS [Suspect]
     Active Substance: SOTORASIB
     Dosage: 600 MILLIGRAM, QD, DOSE INCREASED
     Route: 048
     Dates: start: 20240117, end: 2024
  6. LUMAKRAS [Suspect]
     Active Substance: SOTORASIB
     Dosage: 720 MILLIGRAM, QD DOSE INCREASED
     Route: 048
     Dates: start: 20240214, end: 2024
  7. LUMAKRAS [Suspect]
     Active Substance: SOTORASIB
     Dosage: 840 MILLIGRAM, QD DOSE INCREASED
     Route: 048
     Dates: start: 20240313, end: 2024
  8. LUMAKRAS [Suspect]
     Active Substance: SOTORASIB
     Dosage: 960 MILLIGRAM, QD, DOSE INCREASED
     Route: 048
     Dates: start: 20240508
  9. PEMBROLIZUMAB [Suspect]
     Active Substance: PEMBROLIZUMAB
     Indication: Non-small cell lung cancer
     Dosage: UNK
     Route: 065
     Dates: start: 20230131, end: 2023

REACTIONS (4)
  - Non-small cell lung cancer metastatic [Unknown]
  - Pneumothorax [Unknown]
  - Transaminases increased [Recovered/Resolved]
  - Decreased appetite [Unknown]

NARRATIVE: CASE EVENT DATE: 20230719
